FAERS Safety Report 19133102 (Version 2)
Quarter: 2021Q3

REPORT INFORMATION
  Report Type: Report from Study
  Country: ES (occurrence: ES)
  Receive Date: 20210414
  Receipt Date: 20210706
  Transmission Date: 20211014
  Serious: Yes (Other)
  Sender: FDA-Public Use
  Company Number: ES-AUROBINDO-AUR-APL-2021-015278

PATIENT
  Age: 72 Year
  Sex: Male

DRUGS (2)
  1. TEICOPLANIN [Suspect]
     Active Substance: TEICOPLANIN
     Indication: ANAL ABSCESS
     Dosage: UNK
     Route: 065
  2. ERTAPENEM. [Suspect]
     Active Substance: ERTAPENEM SODIUM
     Indication: ANAL ABSCESS
     Dosage: 1 GRAM, DAILY
     Route: 065

REACTIONS (4)
  - Coma [Unknown]
  - Depressed level of consciousness [Unknown]
  - Status epilepticus [Recovered/Resolved]
  - Respiratory failure [Unknown]
